FAERS Safety Report 18170039 (Version 1)
Quarter: 2020Q3

REPORT INFORMATION
  Report Type: Spontaneous
  Country: US (occurrence: US)
  Receive Date: 20200819
  Receipt Date: 20200819
  Transmission Date: 20201103
  Serious: Yes (Hospitalization, Other)
  Sender: FDA-Public Use
  Company Number: US-SHIRE-US202026420

PATIENT
  Age: 58 Year
  Sex: Male

DRUGS (4)
  1. GATTEX [Suspect]
     Active Substance: TEDUGLUTIDE\WATER
     Indication: PRODUCT USED FOR UNKNOWN INDICATION
     Dosage: 0.4 UNIT WAS NOT REPORTED, 1X/DAY:QD
     Route: 058
     Dates: start: 20200716
  2. GATTEX [Suspect]
     Active Substance: TEDUGLUTIDE\WATER
     Indication: PRODUCT USED FOR UNKNOWN INDICATION
     Dosage: 0.4 UNIT WAS NOT REPORTED, 1X/DAY:QD
     Route: 058
     Dates: start: 20200716
  3. GATTEX [Suspect]
     Active Substance: TEDUGLUTIDE\WATER
     Indication: PRODUCT USED FOR UNKNOWN INDICATION
     Dosage: 0.4 UNIT WAS NOT REPORTED, 1X/DAY:QD
     Route: 058
     Dates: start: 20200716
  4. GATTEX [Suspect]
     Active Substance: TEDUGLUTIDE\WATER
     Indication: PRODUCT USED FOR UNKNOWN INDICATION
     Dosage: 0.4 UNIT WAS NOT REPORTED, 1X/DAY:QD
     Route: 058
     Dates: start: 20200716

REACTIONS (2)
  - Pneumonia [Recovering/Resolving]
  - Rhodococcus infection [Recovering/Resolving]

NARRATIVE: CASE EVENT DATE: 20200725
